FAERS Safety Report 6188733-0 (Version None)
Quarter: 2009Q2

REPORT INFORMATION
  Report Type: 
  Country: None (occurrence: None)
  Receive Date: 20090513
  Receipt Date: 20090506
  Transmission Date: 20091009
  Serious: Yes (Hospitalization)
  Sender: FDA-Public Use
  Company Number: US-B.I. PHARMACEUTICALS,INC./RIDGEFIELD-2009-BP-05127BP

PATIENT
  Age: 47 Year
  Sex: Male

DRUGS (18)
  1. VIRAMUNE [Suspect]
     Indication: HIV INFECTION
     Dosage: 400MG
     Route: 048
     Dates: start: 20080201
  2. PRAVACHOL [Concomitant]
  3. TOPAMAX [Concomitant]
     Dosage: 400MG
     Route: 048
  4. THIAMINE HCL [Concomitant]
     Dosage: 100MG
     Route: 048
  5. NAHCO3 [Concomitant]
     Dosage: 2250MG
     Route: 048
  6. M.V.I. [Concomitant]
     Route: 048
  7. CYMBALTA [Concomitant]
     Dosage: 120MG
     Route: 048
  8. SYNTHROID [Concomitant]
     Dosage: .075MG
     Route: 048
  9. DIGOXIN [Concomitant]
     Dosage: .125MG
     Route: 048
  10. ARICEPT [Concomitant]
     Dosage: 5MG
     Route: 048
  11. FOLATE [Concomitant]
     Dosage: 1MG
     Route: 048
  12. EPZICOM [Concomitant]
     Dosage: 1
     Route: 048
  13. LANTUS [Concomitant]
     Dosage: 80MU
     Route: 058
  14. NOVOLOG [Concomitant]
  15. ASPIRIN [Concomitant]
     Dosage: 325MG
     Route: 048
  16. NEURONTIN [Concomitant]
     Dosage: 4200MG
     Route: 048
  17. ZESTRIL [Concomitant]
     Dosage: 30MG
     Route: 048
  18. LOPRESSOR [Concomitant]
     Dosage: 100MG
     Route: 048

REACTIONS (4)
  - BLOOD CREATINE PHOSPHOKINASE INCREASED [None]
  - DIZZINESS [None]
  - FALL [None]
  - RHABDOMYOLYSIS [None]
